FAERS Safety Report 18790528 (Version 2)
Quarter: 2021Q1

REPORT INFORMATION
  Report Type: Report from Study
  Country: US (occurrence: US)
  Receive Date: 20210126
  Receipt Date: 20210315
  Transmission Date: 20210419
  Serious: Yes (Death, Hospitalization, Other)
  Sender: FDA-Public Use
  Company Number: NVSC2021US016053

PATIENT
  Age: 67 Year
  Sex: Male
  Weight: 79.9 kg

DRUGS (1)
  1. MYFORTIC [Suspect]
     Active Substance: MYCOPHENOLATE SODIUM
     Indication: PRODUCT USED FOR UNKNOWN INDICATION
     Route: 065

REACTIONS (7)
  - Acute kidney injury [Unknown]
  - Respiratory distress [Fatal]
  - Respiratory failure [Fatal]
  - COVID-19 pneumonia [Fatal]
  - COVID-19 [Unknown]
  - Cardiac failure [Unknown]
  - Pulseless electrical activity [Unknown]

NARRATIVE: CASE EVENT DATE: 20200730
